FAERS Safety Report 19166447 (Version 2)
Quarter: 2021Q2

REPORT INFORMATION
  Report Type: Other
  Country: BG (occurrence: BG)
  Receive Date: 20210422
  Receipt Date: 20210429
  Transmission Date: 20210717
  Serious: Yes (Other)
  Sender: FDA-Public Use
  Company Number: BG-CELLTRION INC.-2021BG005268

PATIENT

DRUGS (6)
  1. VENOFER [Concomitant]
     Active Substance: IRON SUCROSE
  2. TRAMADOL. [Concomitant]
     Active Substance: TRAMADOL
     Dosage: ONGOING = CHECKED
     Dates: start: 20200824
  3. ENALAPRIL [Concomitant]
     Active Substance: ENALAPRIL
     Dosage: UNK
     Dates: start: 20091215
  4. DOCETAXEL. [Suspect]
     Active Substance: DOCETAXEL
     Indication: BREAST CANCER
     Dosage: 75 MG EVERY 3 WEEKS
     Route: 042
     Dates: start: 20191031
  5. TRASTUZUMAB (UNKNOWN) [Suspect]
     Active Substance: TRASTUZUMAB
     Indication: BREAST CANCER
     Dosage: 450 MG EVERY 3 WEEKS (DATE OF MOST RECENT DOSE: 27 NOV 2019)
     Route: 042
     Dates: start: 20191031
  6. ANALGIN [METAMIZOLE SODIUM MONOHYDRATE] [Concomitant]
     Active Substance: DIPYRONE
     Dosage: UNK
     Dates: start: 20191015

REACTIONS (2)
  - Underdose [Unknown]
  - Leukopenia [Recovering/Resolving]

NARRATIVE: CASE EVENT DATE: 20200123
